FAERS Safety Report 11544903 (Version 2)
Quarter: 2015Q4

REPORT INFORMATION
  Report Type: Spontaneous
  Country: IT (occurrence: IT)
  Receive Date: 20150924
  Receipt Date: 20151101
  Transmission Date: 20160304
  Serious: Yes (Other)
  Sender: FDA-Public Use
  Company Number: PHHY2015IT114121

PATIENT
  Age: 62 Year
  Sex: Female

DRUGS (2)
  1. ZOMETA [Suspect]
     Active Substance: ZOLEDRONIC ACID
     Indication: METASTASES TO BONE
  2. ZOMETA [Suspect]
     Active Substance: ZOLEDRONIC ACID
     Indication: BREAST CANCER METASTATIC
     Dosage: 1 POS. UNIT, CYCLIC
     Route: 042
     Dates: start: 20130101, end: 20150501

REACTIONS (3)
  - Osteonecrosis of jaw [Recovered/Resolved]
  - Sinusitis [Unknown]
  - Implant site inflammation [Unknown]

NARRATIVE: CASE EVENT DATE: 20150515
